FAERS Safety Report 9915778 (Version 1)
Quarter: 2014Q1

REPORT INFORMATION
  Report Type: Spontaneous
  Country: US (occurrence: None)
  Receive Date: 20140219
  Receipt Date: 20140219
  Transmission Date: 20141002
  Serious: Yes (Hospitalization)
  Sender: FDA-Public Use
  Company Number: None

PATIENT
  Age: 76 Year
  Sex: Male
  Weight: 94.7 kg

DRUGS (1)
  1. CISPLATIN [Suspect]

REACTIONS (4)
  - Decreased appetite [None]
  - Weight decreased [None]
  - Asthenia [None]
  - Fatigue [None]
